FAERS Safety Report 9580040 (Version 1)
Quarter: 2013Q4

REPORT INFORMATION
  Report Type: Report from Study
  Country: US (occurrence: US)
  Receive Date: 20131002
  Receipt Date: 20131002
  Transmission Date: 20140711
  Serious: Yes (Other)
  Sender: FDA-Public Use
  Company Number: US-ALEXION PHARMACEUTICALS INC.-A201302452

PATIENT
  Sex: 0

DRUGS (1)
  1. SOLIRIS [Suspect]
     Indication: PAROXYSMAL NOCTURNAL HAEMOGLOBINURIA
     Dosage: UNK
     Route: 042

REACTIONS (5)
  - Extravascular haemolysis [Not Recovered/Not Resolved]
  - Haemoglobin decreased [Unknown]
  - Serum ferritin increased [Unknown]
  - Platelet count normal [Recovered/Resolved]
  - Reticulocytosis [Unknown]
